FAERS Safety Report 8301202-4 (Version None)
Quarter: 2012Q2

REPORT INFORMATION
  Report Type: 
  Country: None (occurrence: None)
  Receive Date: 20120420
  Receipt Date: 20120420
  Transmission Date: 20120825
  Serious: No
  Sender: FDA-Public Use
  Company Number: None

PATIENT
  Sex: Female
  Weight: 40.823 kg

DRUGS (2)
  1. DEPO-PROVERA [Suspect]
     Indication: MENORRHAGIA
     Dates: start: 20110409, end: 20120409
  2. DEPO-PROVERA [Suspect]
     Indication: CONTRACEPTION
     Dates: start: 20110409, end: 20120409

REACTIONS (4)
  - MALAISE [None]
  - ALOPECIA [None]
  - NIGHT SWEATS [None]
  - ANXIETY [None]
